FAERS Safety Report 6738791-7 (Version None)
Quarter: 2010Q2

REPORT INFORMATION
  Report Type: 
  Country: None (occurrence: None)
  Receive Date: 20100524
  Receipt Date: 20100413
  Transmission Date: 20101027
  Serious: Yes (Death, Other)
  Sender: FDA-Public Use
  Company Number: US-BAXTER-2009BH005081

PATIENT
  Age: 80 Year
  Sex: Female

DRUGS (21)
  1. HEPARIN SODIUM INJECTION [Suspect]
     Indication: HAEMODIALYSIS
     Route: 042
     Dates: start: 20080214, end: 20080221
  2. HEPARIN SODIUM INJECTION [Suspect]
     Route: 013
     Dates: start: 20080214, end: 20080221
  3. HEPARIN SODIUM INJECTION [Suspect]
     Route: 042
     Dates: start: 20080223, end: 20080223
  4. HEPARIN SODIUM INJECTION [Suspect]
     Route: 013
     Dates: start: 20080223, end: 20080223
  5. HEPARIN SODIUM INJECTION [Suspect]
     Route: 042
     Dates: start: 20080315, end: 20080318
  6. HEPARIN SODIUM INJECTION [Suspect]
     Route: 013
     Dates: start: 20080315, end: 20080318
  7. HEPARIN SODIUM INJECTION [Suspect]
     Route: 042
     Dates: start: 20080322, end: 20080325
  8. HEPARIN SODIUM INJECTION [Suspect]
     Route: 013
     Dates: start: 20080322, end: 20080325
  9. COLACE [Concomitant]
     Indication: DRUG USE FOR UNKNOWN INDICATION
     Route: 065
  10. VITAMIN C [Concomitant]
     Indication: DRUG USE FOR UNKNOWN INDICATION
     Route: 065
  11. FERROUS SULFATE TAB [Concomitant]
     Indication: DRUG USE FOR UNKNOWN INDICATION
     Route: 065
  12. RENAGEL [Concomitant]
     Indication: DRUG USE FOR UNKNOWN INDICATION
     Route: 065
  13. BENICAR [Concomitant]
     Indication: DRUG USE FOR UNKNOWN INDICATION
     Route: 065
  14. TRAMADOL HYDROCHLORIDE [Concomitant]
     Indication: DRUG USE FOR UNKNOWN INDICATION
     Route: 065
  15. MEGESTROL ACETATE [Concomitant]
     Indication: DRUG USE FOR UNKNOWN INDICATION
     Route: 065
  16. METOPROLOL [Concomitant]
     Indication: DRUG USE FOR UNKNOWN INDICATION
     Route: 065
  17. AMLODIPINE [Concomitant]
     Indication: DRUG USE FOR UNKNOWN INDICATION
     Route: 065
  18. LORAZEPAM [Concomitant]
     Indication: DRUG USE FOR UNKNOWN INDICATION
     Route: 065
  19. GABAPENTIN [Concomitant]
     Indication: DRUG USE FOR UNKNOWN INDICATION
     Route: 065
  20. NOVOLIN R [Concomitant]
     Indication: DRUG USE FOR UNKNOWN INDICATION
     Route: 058
  21. NOVOLIN 70/30 [Concomitant]
     Indication: DRUG USE FOR UNKNOWN INDICATION
     Route: 058

REACTIONS (25)
  - ANAEMIA [None]
  - ARTHRITIS [None]
  - BURNING SENSATION [None]
  - CEREBROVASCULAR ACCIDENT [None]
  - CHEST DISCOMFORT [None]
  - CHEST PAIN [None]
  - CHILLS [None]
  - CONSTIPATION [None]
  - DEHYDRATION [None]
  - DIZZINESS [None]
  - DYSPNOEA [None]
  - FLUID RETENTION [None]
  - HEART RATE IRREGULAR [None]
  - HYPOTENSION [None]
  - METABOLIC ACIDOSIS [None]
  - MUSCLE SPASMS [None]
  - NAUSEA [None]
  - OEDEMA PERIPHERAL [None]
  - PARAESTHESIA [None]
  - PRURITUS [None]
  - RENAL FAILURE CHRONIC [None]
  - SEPSIS [None]
  - THROMBOSIS [None]
  - VOMITING [None]
  - YAWNING [None]
